FAERS Safety Report 20506412 (Version 1)
Quarter: 2022Q1

REPORT INFORMATION
  Report Type: Report from Study
  Country: US (occurrence: US)
  Receive Date: 20220223
  Receipt Date: 20220223
  Transmission Date: 20220423
  Serious: Yes (Other)
  Sender: FDA-Public Use
  Company Number: US-BAYER-2022A023722

PATIENT
  Age: 52 Year
  Sex: Female

DRUGS (1)
  1. NEXAVAR [Suspect]
     Active Substance: SORAFENIB
     Indication: Desmoid tumour
     Dosage: 200 MG, BID
     Route: 048
     Dates: start: 20200514

REACTIONS (4)
  - Gait inability [None]
  - Blister [None]
  - Pain in extremity [None]
  - Off label use [None]

NARRATIVE: CASE EVENT DATE: 20200514
